FAERS Safety Report 11172018 (Version 1)
Quarter: 2015Q2

REPORT INFORMATION
  Report Type: Spontaneous
  Country: US (occurrence: None)
  Receive Date: 20150605
  Receipt Date: 20150605
  Transmission Date: 20150821
  Serious: No
  Sender: FDA-Public Use
  Company Number: None

PATIENT
  Age: 38 Year
  Sex: Male
  Weight: 90.72 kg

DRUGS (23)
  1. IBUPROFEN. [Concomitant]
     Active Substance: IBUPROFEN
  2. ULTRAM [Suspect]
     Active Substance: TRAMADOL HYDROCHLORIDE
     Indication: PAIN
     Dosage: 1 TAKE 1 TAB. 6 TO 8 TAKEN BY MOUTH
     Route: 048
     Dates: start: 20130222
  3. NAPROXEN. [Concomitant]
     Active Substance: NAPROXEN
  4. ZOLPIDEM [Concomitant]
     Active Substance: ZOLPIDEM\ZOLPIDEM TARTRATE
  5. TIZANIDINE (TIZANIDINE) [Concomitant]
     Active Substance: TIZANIDINE
  6. METHOCARBAMOL. [Concomitant]
     Active Substance: METHOCARBAMOL
  7. CYCLOBENZAPRINE [Concomitant]
     Active Substance: CYCLOBENZAPRINE
  8. HYDROCODONE [Concomitant]
     Active Substance: HYDROCODONE
  9. DOCQLACE [Concomitant]
     Active Substance: DOCUSATE SODIUM
  10. LISINOPRIL. [Concomitant]
     Active Substance: LISINOPRIL
  11. MULTIVITAMIN/MINERAL [Concomitant]
  12. GLUCOSAMINE [Concomitant]
     Active Substance: GLUCOSAMINE
  13. CETIRIZINE [Concomitant]
     Active Substance: CETIRIZINE HYDROCHLORIDE
  14. COQ10 [Concomitant]
     Active Substance: UBIDECARENONE
  15. ALEVE [Concomitant]
     Active Substance: NAPROXEN SODIUM
  16. CITALOPRAM [Concomitant]
     Active Substance: CITALOPRAM HYDROBROMIDE
  17. CARISOPRODOL. [Concomitant]
     Active Substance: CARISOPRODOL
  18. OMEPRAZOLE. [Concomitant]
     Active Substance: OMEPRAZOLE
  19. ATORVASTATIN [Concomitant]
     Active Substance: ATORVASTATIN
  20. VICODIN [Concomitant]
     Active Substance: ACETAMINOPHEN\HYDROCODONE BITARTRATE
  21. FISH OIL [Concomitant]
     Active Substance: FISH OIL
  22. NASACORT [Concomitant]
     Active Substance: TRIAMCINOLONE ACETONIDE
  23. COLD/ FLU MEDICINE [Concomitant]

REACTIONS (7)
  - Blister [None]
  - Scar [None]
  - Hallucination [None]
  - Skin depigmentation [None]
  - Palpitations [None]
  - Hyperhidrosis [None]
  - Nightmare [None]

NARRATIVE: CASE EVENT DATE: 20120309
